FAERS Safety Report 5267537-7 (Version None)
Quarter: 2007Q1

REPORT INFORMATION
  Report Type: 
  Country: None (occurrence: None)
  Receive Date: 20061213
  Receipt Date: 20030725
  Transmission Date: 20070707
  Serious: Yes (Hospitalization)
  Sender: FDA-Public Use
  Company Number: 2003UW08481

PATIENT
  Age: 68 Year
  Sex: Female
  Weight: 83.9154 kg

DRUGS (6)
  1. NOLVADEX [Suspect]
     Indication: BREAST CANCER
     Dosage: 20 MG QD PO
     Route: 048
     Dates: start: 20020712, end: 20030615
  2. FOSAMAX [Concomitant]
  3. ALTACE [Concomitant]
  4. VITAMIN [Concomitant]
  5. ASPIRIN [Concomitant]
  6. LOVENOX [Concomitant]

REACTIONS (1)
  - PULMONARY EMBOLISM [None]
